FAERS Safety Report 7233711-3 (Version None)
Quarter: 2011Q1

REPORT INFORMATION
  Report Type: 
  Country: None (occurrence: None)
  Receive Date: 20110119
  Receipt Date: 20100510
  Transmission Date: 20110831
  Serious: No
  Sender: FDA-Public Use
  Company Number: US-TEVA-231375USA

PATIENT
  Sex: Female

DRUGS (11)
  1. COPAXONE [Suspect]
     Indication: MULTIPLE SCLEROSIS
     Route: 058
     Dates: start: 20100329
  2. TRAVOPROST [Concomitant]
  3. VICODIN [Concomitant]
  4. VENLAFAXINE [Concomitant]
  5. DYAZIDE [Concomitant]
  6. TENORETIC 100 [Concomitant]
  7. IMIQUIMOD [Concomitant]
  8. ZOLPIDEM TARTRATE [Concomitant]
  9. SIMVASTATIN [Concomitant]
  10. GABAPENTIN [Concomitant]
  11. IBANDRONATE SODIUM [Concomitant]

REACTIONS (1)
  - INJECTION SITE REACTION [None]
